FAERS Safety Report 20142135 (Version 1)
Quarter: 2021Q4

REPORT INFORMATION
  Report Type: Spontaneous
  Country: IN (occurrence: IN)
  Receive Date: 20211202
  Receipt Date: 20211202
  Transmission Date: 20220303
  Serious: Yes (Other)
  Sender: FDA-Public Use
  Company Number: IN-ORGANON-O2111IND003022

PATIENT
  Age: 43 Year
  Sex: Female

DRUGS (1)
  1. FOLLITROPIN [Suspect]
     Active Substance: FOLLITROPIN
     Indication: Infertility
     Dosage: 150 IU INTERNATIONAL UNIT(S) FOR 4 DAYS

REACTIONS (4)
  - Renal failure [Unknown]
  - Ovarian hyperstimulation syndrome [Unknown]
  - Peripheral swelling [Unknown]
  - Fluid retention [Unknown]
